FAERS Safety Report 7864269 (Version 3)
Quarter: 2013Q4

REPORT INFORMATION
  Report Type: Spontaneous
  Country: CA (occurrence: US)
  Receive Date: 20110321
  Receipt Date: 20131118
  Transmission Date: 20140711
  Serious: Yes (Other)
  Sender: FDA-Public Use
  Company Number: US-PFIZER INC-2011056662

PATIENT
  Age: 35 Year
  Sex: Female

DRUGS (3)
  1. PREGABALIN [Suspect]
     Indication: NEURALGIA
     Dosage: 200 MG, 3X/DAY
  2. PREGABALIN [Suspect]
     Indication: ABDOMINAL PAIN
  3. ESCITALOPRAM [Concomitant]
     Indication: ANXIETY
     Dosage: UNK

REACTIONS (2)
  - Off label use [Unknown]
  - Drug abuse [Unknown]
